FAERS Safety Report 6180908-X (Version None)
Quarter: 2009Q2

REPORT INFORMATION
  Report Type: 
  Country: None (occurrence: None)
  Receive Date: 20090504
  Receipt Date: 20090504
  Transmission Date: 20091009
  Serious: Yes (Disabling, Other)
  Sender: FDA-Public Use
  Company Number: None

PATIENT
  Sex: Female
  Weight: 56.6996 kg

DRUGS (4)
  1. SEROQUEL [Suspect]
     Indication: AFFECTIVE DISORDER
     Dosage: 350 MG ONCE PER DAY/HS PO
     Route: 048
     Dates: start: 20020601, end: 20071101
  2. PARNATE [Concomitant]
  3. KLONPIN [Concomitant]
  4. PREVACID [Concomitant]

REACTIONS (4)
  - CATARACT [None]
  - FEAR [None]
  - VISUAL IMPAIRMENT [None]
  - WEIGHT INCREASED [None]
